FAERS Safety Report 6710744-4 (Version None)
Quarter: 2010Q2

REPORT INFORMATION
  Report Type: 
  Country: None (occurrence: None)
  Receive Date: 20100504
  Receipt Date: 20100504
  Transmission Date: 20101027
  Serious: Yes (Hospitalization)
  Sender: FDA-Public Use
  Company Number: None

PATIENT
  Sex: Male
  Weight: 6.2 kg

DRUGS (1)
  1. SABRIL [Suspect]
     Indication: EPILEPSY
     Dosage: 150 MG BID PO
     Route: 048
     Dates: start: 20100315, end: 20100323

REACTIONS (3)
  - BACK DISORDER [None]
  - DYSTONIA [None]
  - OPISTHOTONUS [None]
